FAERS Safety Report 21531297 (Version 1)
Quarter: 2022Q4

REPORT INFORMATION
  Report Type: Spontaneous
  Country: US (occurrence: None)
  Receive Date: 20221028
  Receipt Date: 20221028
  Transmission Date: 20230113
  Serious: Yes (Hospitalization)
  Sender: FDA-Public Use
  Company Number: None

PATIENT
  Age: 66 Year
  Sex: Female

DRUGS (1)
  1. ADENOSINE [Suspect]
     Active Substance: ADENOSINE
     Indication: Cardiac stress test
     Dates: start: 20220316, end: 20220316

REACTIONS (2)
  - Respiratory depression [None]
  - Lethargy [None]

NARRATIVE: CASE EVENT DATE: 20220316
